FAERS Safety Report 20948762 (Version 3)
Quarter: 2023Q2

REPORT INFORMATION
  Report Type: Report from Study
  Country: NL (occurrence: NL)
  Receive Date: 20220612
  Receipt Date: 20230623
  Transmission Date: 20230722
  Serious: Yes (Hospitalization, Other)
  Sender: FDA-Public Use
  Company Number: NL-NOVARTISPH-NVSC2022NL132557

PATIENT
  Age: 82 Year
  Sex: Female

DRUGS (3)
  1. OCTREOTIDE ACETATE [Suspect]
     Active Substance: OCTREOTIDE ACETATE
     Indication: Acromegaly
     Dosage: 1 DOSAGE FORM, Q4W
     Route: 030
  2. OCTREOTIDE ACETATE [Suspect]
     Active Substance: OCTREOTIDE ACETATE
  3. OCTREOTIDE ACETATE [Suspect]
     Active Substance: OCTREOTIDE ACETATE

REACTIONS (6)
  - Renal impairment [Unknown]
  - Confusional state [Unknown]
  - Diabetes mellitus [Not Recovered/Not Resolved]
  - Peripheral swelling [Unknown]
  - Cystitis noninfective [Unknown]
  - Fatigue [Unknown]

NARRATIVE: CASE EVENT DATE: 20220510
